FAERS Safety Report 13552973 (Version 2)
Quarter: 2017Q4

REPORT INFORMATION
  Report Type: Spontaneous
  Country: US (occurrence: US)
  Receive Date: 20170517
  Receipt Date: 20171004
  Transmission Date: 20180320
  Serious: Yes (Other)
  Sender: FDA-Public Use
  Company Number: US-PFIZER INC-2017210837

PATIENT
  Age: 89 Year
  Sex: Female
  Weight: 38.92 kg

DRUGS (4)
  1. TRAMADOL. [Concomitant]
     Active Substance: TRAMADOL
     Indication: BACK PAIN
     Dosage: 50 MG, 1X/DAY
     Route: 048
  2. XALKORI [Suspect]
     Active Substance: CRIZOTINIB
     Dosage: 250 MG, DAILY (TAKE 250 MG EVERY 24 HOURS)
     Route: 048
     Dates: start: 20170510, end: 20170831
  3. XALKORI [Suspect]
     Active Substance: CRIZOTINIB
     Dosage: 250 MG, ONCE A DAY
     Route: 048
     Dates: start: 201704
  4. XALKORI [Suspect]
     Active Substance: CRIZOTINIB
     Indication: LUNG NEOPLASM MALIGNANT
     Dosage: 250 MG, TWO TIMES DAILY FOR 2-3 WEEKS
     Route: 048
     Dates: start: 201703

REACTIONS (6)
  - Weight increased [Unknown]
  - Oedema peripheral [Recovering/Resolving]
  - Ascites [Unknown]
  - Neoplasm progression [Not Recovered/Not Resolved]
  - Nausea [Recovered/Resolved]
  - Vomiting [Recovered/Resolved]

NARRATIVE: CASE EVENT DATE: 201703
